FAERS Safety Report 21604968 (Version 1)
Quarter: 2022Q4

REPORT INFORMATION
  Report Type: Spontaneous
  Country: US (occurrence: US)
  Receive Date: 20221116
  Receipt Date: 20221116
  Transmission Date: 20230113
  Serious: No
  Sender: FDA-Public Use
  Company Number: US-SA-SAC20221114000441

PATIENT
  Sex: Female

DRUGS (35)
  1. DUPIXENT [Suspect]
     Active Substance: DUPILUMAB
     Indication: Asthma
     Dosage: 300 MG QOW
     Route: 058
     Dates: start: 20211005
  2. ADVAIR HFA [Concomitant]
     Active Substance: FLUTICASONE PROPIONATE\SALMETEROL XINAFOATE
     Dosage: ADVAIR DISKU AER 500/50
  3. ALBUTEROL [Concomitant]
     Active Substance: ALBUTEROL
  4. ATROVENT [Concomitant]
     Active Substance: IPRATROPIUM BROMIDE
  5. AZITHROMYCIN [Concomitant]
     Active Substance: AZITHROMYCIN
  6. BENZONATATE [Concomitant]
     Active Substance: BENZONATATE
  7. DICLOFENAC [Concomitant]
     Active Substance: DICLOFENAC
  8. DULOXETINE [Concomitant]
     Active Substance: DULOXETINE
  9. EZETIMIBE [Concomitant]
     Active Substance: EZETIMIBE
     Dosage: 10MG
  10. CYCLOBENZAPRINE [Concomitant]
     Active Substance: CYCLOBENZAPRINE
  11. FARXIGA [Concomitant]
     Active Substance: DAPAGLIFLOZIN PROPANEDIOL
  12. FOLBIC [Concomitant]
     Active Substance: CYANOCOBALAMIN\FOLIC ACID\PYRIDOXINE
  13. GABAPENTIN [Concomitant]
     Active Substance: GABAPENTIN
  14. HYDROCHLOROTHIAZIDE [Concomitant]
     Active Substance: HYDROCHLOROTHIAZIDE
  15. HYZAAR [Concomitant]
     Active Substance: HYDROCHLOROTHIAZIDE\LOSARTAN POTASSIUM
     Dosage: 100-25
  16. IPRATROPIUM [Concomitant]
     Active Substance: IPRATROPIUM
  17. LANTUS SOLOSTAR [Concomitant]
     Active Substance: INSULIN GLARGINE
     Dosage: 100/ML
  18. LOSARTAN POTASSIUM [Concomitant]
     Active Substance: LOSARTAN POTASSIUM
  19. METOCLOPRAMIDE [Concomitant]
     Active Substance: METOCLOPRAMIDE
  20. METOPROLOL SUCCINATE [Concomitant]
     Active Substance: METOPROLOL SUCCINATE
  21. MONTELUKAST [Concomitant]
     Active Substance: MONTELUKAST SODIUM
  22. PIOGLITAZONE [Concomitant]
     Active Substance: PIOGLITAZONE
  23. PREDNISONE [Concomitant]
     Active Substance: PREDNISONE
  24. PROAIR HFA [Concomitant]
     Active Substance: ALBUTEROL SULFATE
  25. ROSUVASTATIN [Concomitant]
     Active Substance: ROSUVASTATIN
  26. SPIRIVA [Concomitant]
     Active Substance: TIOTROPIUM BROMIDE MONOHYDRATE
  27. SPIRONOLACTONE [Concomitant]
     Active Substance: SPIRONOLACTONE
  28. TOUJEO [Concomitant]
     Active Substance: INSULIN GLARGINE
  29. VASCEPA [Concomitant]
     Active Substance: ICOSAPENT ETHYL
  30. VICTOZA [Concomitant]
     Active Substance: LIRAGLUTIDE
  31. CYCLOBENZAPRINE [Concomitant]
     Active Substance: CYCLOBENZAPRINE
  32. GABAPENTIN [Concomitant]
     Active Substance: GABAPENTIN
  33. GABAPENTIN [Concomitant]
     Active Substance: GABAPENTIN
  34. PREDNISONE [Concomitant]
     Active Substance: PREDNISONE
  35. ROSUVASTATIN [Concomitant]
     Active Substance: ROSUVASTATIN

REACTIONS (5)
  - Sneezing [Not Recovered/Not Resolved]
  - Cough [Not Recovered/Not Resolved]
  - Asthma [Not Recovered/Not Resolved]
  - Impaired quality of life [Not Recovered/Not Resolved]
  - Drug ineffective [Not Recovered/Not Resolved]
